FAERS Safety Report 15088500 (Version 1)
Quarter: 2018Q2

REPORT INFORMATION
  Report Type: Report from Study
  Country: JP (occurrence: JP)
  Receive Date: 20180629
  Receipt Date: 20180629
  Transmission Date: 20180711
  Serious: Yes (Life-Threatening, Disabling)
  Sender: FDA-Public Use
  Company Number: JP-B.I. PHARMACEUTICALS,INC./RIDGEFIELD-2018-NB-001958

PATIENT
  Age: 73 Year
  Sex: Male
  Weight: 56 kg

DRUGS (9)
  1. PARIET [Concomitant]
     Active Substance: RABEPRAZOLE SODIUM
     Indication: PRODUCT USED FOR UNKNOWN INDICATION
     Route: 065
  2. BIBF 1120 [Suspect]
     Active Substance: NINTEDANIB
     Route: 065
     Dates: start: 20160817, end: 20161228
  3. HUSTAZOL [Concomitant]
     Active Substance: CLOPERASTINE
     Indication: PRODUCT USED FOR UNKNOWN INDICATION
     Route: 065
  4. HOKUNALIN [Concomitant]
     Active Substance: TULOBUTEROL
     Indication: PRODUCT USED FOR UNKNOWN INDICATION
     Route: 065
  5. BIBF 1120 [Suspect]
     Active Substance: NINTEDANIB
     Indication: IDIOPATHIC PULMONARY FIBROSIS
     Route: 065
     Dates: start: 20160609, end: 20160803
  6. BAYASPIRIN [Concomitant]
     Active Substance: ASPIRIN
     Indication: PRODUCT USED FOR UNKNOWN INDICATION
     Route: 065
  7. BLOPRESS [Concomitant]
     Active Substance: CANDESARTAN CILEXETIL
     Indication: PRODUCT USED FOR UNKNOWN INDICATION
     Route: 065
  8. MUCODYNE [Concomitant]
     Active Substance: CARBOCYSTEINE
     Indication: PRODUCT USED FOR UNKNOWN INDICATION
     Route: 065
  9. RYTHMODAN [Concomitant]
     Active Substance: DISOPYRAMIDE
     Indication: PRODUCT USED FOR UNKNOWN INDICATION
     Route: 065

REACTIONS (4)
  - Drug effect incomplete [Unknown]
  - Hepatic function abnormal [Not Recovered/Not Resolved]
  - Idiopathic pulmonary fibrosis [Recovered/Resolved with Sequelae]
  - Diarrhoea [Not Recovered/Not Resolved]

NARRATIVE: CASE EVENT DATE: 20160622
